FAERS Safety Report 23622467 (Version 8)
Quarter: 2024Q4

REPORT INFORMATION
  Report Type: Spontaneous
  Country: US (occurrence: US)
  Receive Date: 20240312
  Receipt Date: 20241121
  Transmission Date: 20250115
  Serious: Yes (Other)
  Sender: SANOFI AVENTIS
  Company Number: US-SA-SAC20240308001127

PATIENT
  Age: 77 Year
  Sex: Female

DRUGS (8)
  1. DUPIXENT [Suspect]
     Active Substance: DUPILUMAB
     Indication: Dermatitis atopic
     Dosage: 600 MG, 1X
     Route: 058
     Dates: start: 20240221, end: 20240221
  2. DUPIXENT [Suspect]
     Active Substance: DUPILUMAB
     Indication: Eczema
     Dosage: 300 MG, QOW
     Route: 058
     Dates: start: 2024
  3. CERAVE DEVELOPED WITH DERMATOLOGISTS ECZEMA RELIEF CREAMY [Concomitant]
     Active Substance: OATMEAL
  4. BACTRIM [Concomitant]
     Active Substance: SULFAMETHOXAZOLE\TRIMETHOPRIM
  5. TRIAMCINOLONE [Concomitant]
     Active Substance: TRIAMCINOLONE
  6. BETAMETHASONE [Concomitant]
     Active Substance: BETAMETHASONE
     Dosage: UNK
  7. XANAX [Concomitant]
     Active Substance: ALPRAZOLAM
     Dosage: UNK
  8. MINERALS\VITAMINS [Concomitant]
     Active Substance: MINERALS\VITAMINS

REACTIONS (19)
  - Pemphigus [Unknown]
  - Lip blister [Unknown]
  - Stomatitis [Unknown]
  - Blister [Unknown]
  - Lip swelling [Unknown]
  - Gingival pain [Unknown]
  - Oral mucosal blistering [Recovering/Resolving]
  - Mouth swelling [Not Recovered/Not Resolved]
  - Hypokinesia [Unknown]
  - Scratch [Unknown]
  - Hypoacusis [Unknown]
  - Eating disorder [Unknown]
  - Neck pain [Unknown]
  - Eczema [Unknown]
  - Pruritus [Unknown]
  - Therapeutic response shortened [Unknown]
  - Drug ineffective [Unknown]
  - Dermatitis atopic [Unknown]
  - Rash vesicular [Unknown]

NARRATIVE: CASE EVENT DATE: 20240101
